FAERS Safety Report 6933621-2 (Version None)
Quarter: 2010Q3

REPORT INFORMATION
  Report Type: 
  Country: None (occurrence: None)
  Receive Date: 20100820
  Receipt Date: 20100622
  Transmission Date: 20110219
  Serious: Yes (Hospitalization)
  Sender: FDA-Public Use
  Company Number: ES-ELI_LILLY_AND_COMPANY-ES201008004370

PATIENT
  Sex: Female

DRUGS (8)
  1. FORTEO [Suspect]
     Indication: OSTEOPOROSIS
     Dosage: 20 UG, DAILY (1/D)
     Route: 058
     Dates: start: 20100528, end: 20100620
  2. AMLODIPINO /00972401/ [Concomitant]
     Indication: HYPERTENSION
     Dosage: UNK, DAILY (1/D)
     Route: 048
  3. TRANQUINAL [Concomitant]
     Indication: SLEEP DISORDER
     Dosage: UNK, DAILY (1/D)
     Route: 065
  4. SERC /00034201/ [Concomitant]
     Indication: DIZZINESS
     Dosage: 2TABLETS PER DAY, DAILY (1/D)
     Route: 065
  5. CIPREX [Concomitant]
     Indication: HALLUCINATION
     Dosage: UNK, DAILY (1/D)
     Route: 048
  6. DISTRANEURINE [Concomitant]
     Indication: SLEEP DISORDER
     Dosage: 2 TABLETS PER DAY, DAILY (1/D)
     Route: 048
  7. NATECAL [Concomitant]
     Dosage: 2 TABLETS PER DAY, DAILY (1/D)
     Route: 048
  8. GAMMA GLOBULINA [Concomitant]
     Dosage: CYCLES FORM MON TO FRI, UNKNOWN
     Route: 042

REACTIONS (1)
  - OEDEMA PERIPHERAL [None]
